FAERS Safety Report 8499976-5 (Version None)
Quarter: 2012Q3

REPORT INFORMATION
  Report Type: 
  Country: None (occurrence: None)
  Receive Date: 20120710
  Receipt Date: 20120627
  Transmission Date: 20120928
  Serious: Yes (Hospitalization)
  Sender: FDA-Public Use
  Company Number: TR-ELI_LILLY_AND_COMPANY-TR201206009214

PATIENT
  Age: 31 Year
  Sex: Female

DRUGS (1)
  1. OLANZAPINE [Suspect]
     Indication: SCHIZOPHRENIA
     Dosage: UNK

REACTIONS (5)
  - SCHIZOPHRENIA, CATATONIC TYPE [None]
  - ACUTE PRERENAL FAILURE [None]
  - DECUBITUS ULCER [None]
  - DEHYDRATION [None]
  - HYPERNATRAEMIA [None]
